FAERS Safety Report 12308715 (Version 1)
Quarter: 2016Q2

REPORT INFORMATION
  Report Type: Spontaneous
  Country: US (occurrence: US)
  Receive Date: 20160427
  Receipt Date: 20160427
  Transmission Date: 20160815
  Serious: No
  Sender: FDA-Public Use
  Company Number: US-GLENMARK PHARMACEUTICALS INC, USA.-2015GMK019902

PATIENT
  Age: 55 Year
  Sex: Male

DRUGS (6)
  1. IMIQUIMOD CREAM [Suspect]
     Active Substance: IMIQUIMOD
     Indication: METASTATIC MALIGNANT MELANOMA
     Dosage: UNK, QD
     Route: 061
     Dates: start: 201004
  2. IMIQUIMOD CREAM [Suspect]
     Active Substance: IMIQUIMOD
     Indication: MALIGNANT MELANOMA STAGE IV
  3. INTERLEUKIN-2 [Suspect]
     Active Substance: ALDESLEUKIN
     Indication: METASTATIC MALIGNANT MELANOMA
     Dosage: 3.6-22 MILLION IU, UNK
     Route: 026
     Dates: start: 201004
  4. INTERLEUKIN-2 [Suspect]
     Active Substance: ALDESLEUKIN
     Indication: MALIGNANT MELANOMA STAGE IV
  5. RETINOID [Suspect]
     Active Substance: UNSPECIFIED INGREDIENT
     Indication: METASTATIC MALIGNANT MELANOMA
     Dosage: UNK, QD
     Route: 061
  6. RETINOID [Suspect]
     Active Substance: UNSPECIFIED INGREDIENT
     Indication: MALIGNANT MELANOMA STAGE IV

REACTIONS (10)
  - Off label use [Unknown]
  - Metastases to lung [None]
  - Chills [Unknown]
  - Metastases to central nervous system [None]
  - Skin ulcer [Unknown]
  - Disease complication [None]
  - Metastases to liver [None]
  - Weight decreased [Unknown]
  - Fatigue [None]
  - Arthralgia [Unknown]
